FAERS Safety Report 6184493-8 (Version None)
Quarter: 2009Q2

REPORT INFORMATION
  Report Type: 
  Country: None (occurrence: None)
  Receive Date: 20090508
  Receipt Date: 20090429
  Transmission Date: 20091009
  Serious: Yes (Hospitalization, Other)
  Sender: FDA-Public Use
  Company Number: DE-JNJFOC-20090406562

PATIENT
  Age: 64 Year
  Sex: Female
  Weight: 60 kg

DRUGS (7)
  1. REMICADE [Suspect]
     Dosage: 2ND INFUSION
     Route: 042
  2. REMICADE [Suspect]
     Route: 042
  3. REMICADE [Suspect]
     Indication: ANKYLOSING SPONDYLITIS
     Route: 042
  4. GLUCOCORTICOIDS [Concomitant]
  5. PREDNISOLONE [Concomitant]
     Indication: ANKYLOSING SPONDYLITIS
  6. CALCICHEW D3 [Concomitant]
     Indication: OSTEOPOROSIS
  7. PREDNISOLONE [Concomitant]
     Indication: PREMEDICATION

REACTIONS (3)
  - INFUSION RELATED REACTION [None]
  - PALPITATIONS [None]
  - TACHYCARDIA [None]
